FAERS Safety Report 12179549 (Version 3)
Quarter: 2016Q2

REPORT INFORMATION
  Report Type: Report from Study
  Country: NL (occurrence: NL)
  Receive Date: 20160314
  Receipt Date: 20160609
  Transmission Date: 20160815
  Serious: Yes (Hospitalization)
  Sender: FDA-Public Use
  Company Number: NL-ABBVIE-16P-114-1578999-00

PATIENT
  Age: 84 Year
  Sex: Female
  Weight: 62 kg

DRUGS (1)
  1. DUODOPA [Suspect]
     Active Substance: CARBIDOPA\LEVODOPA
     Indication: PARKINSON^S DISEASE
     Dosage: MD 7.0, CD 3.2,ED 1.0
     Route: 050
     Dates: start: 20090311

REACTIONS (10)
  - Urinary tract infection [Recovered/Resolved]
  - Hyperkinesia [Not Recovered/Not Resolved]
  - Joint dislocation [Recovered/Resolved]
  - Delirium [Recovered/Resolved]
  - Bedridden [Not Recovered/Not Resolved]
  - Hallucination [Not Recovered/Not Resolved]
  - Delusion [Not Recovered/Not Resolved]
  - Hypophagia [Recovering/Resolving]
  - Limb deformity [Recovered/Resolved with Sequelae]
  - Pleural effusion [Recovered/Resolved]

NARRATIVE: CASE EVENT DATE: 201603
